FAERS Safety Report 15158477 (Version 2)
Quarter: 2018Q3

REPORT INFORMATION
  Report Type: Report from Study
  Country: US (occurrence: US)
  Receive Date: 20180718
  Receipt Date: 20180822
  Transmission Date: 20181010
  Serious: Yes (Hospitalization)
  Sender: FDA-Public Use
  Company Number: US-PFIZER INC-2018057106

PATIENT
  Age: 56 Year
  Sex: Male

DRUGS (2)
  1. SUTENT [Suspect]
     Active Substance: SUNITINIB MALATE
     Indication: RENAL CELL CARCINOMA
     Dosage: 50 MG, DAILY
     Route: 048
     Dates: start: 20180205, end: 201802
  2. SUTENT [Suspect]
     Active Substance: SUNITINIB MALATE
     Dosage: 50 MG, CYCLIC (DAILY, 2 WEEKS ON, 1 WEEK OFF, ALSO REPORTED AS ^^X14 DAYS, OFF 7 DAYS^^)
     Route: 048
     Dates: end: 20180801

REACTIONS (13)
  - Insomnia [Not Recovered/Not Resolved]
  - Vomiting [Unknown]
  - Nausea [Unknown]
  - Red blood cell count decreased [Unknown]
  - Weight decreased [Unknown]
  - Fatigue [Unknown]
  - Abdominal abscess [Unknown]
  - Swollen tongue [Unknown]
  - Glossodynia [Not Recovered/Not Resolved]
  - Tongue haemorrhage [Recovered/Resolved]
  - White blood cell count decreased [Unknown]
  - Stomatitis [Unknown]
  - Trismus [Unknown]

NARRATIVE: CASE EVENT DATE: 2018
